FAERS Safety Report 9167333 (Version 2)
Quarter: 2013Q2

REPORT INFORMATION
  Report Type: Spontaneous
  Country: DE (occurrence: DE)
  Receive Date: 20130318
  Receipt Date: 20130610
  Transmission Date: 20140414
  Serious: Yes (Life-Threatening, Hospitalization, Other)
  Sender: FDA-Public Use
  Company Number: DE-009507513-1303DEU007724

PATIENT
  Age: 30 Year
  Sex: Male

DRUGS (1)
  1. BRIDION [Suspect]
     Indication: NEUROMUSCULAR BLOCKADE REVERSAL
     Dosage: UNK
     Dates: start: 20130313

REACTIONS (3)
  - Heart rate irregular [Recovered/Resolved]
  - Anaphylactic shock [Recovered/Resolved]
  - Flushing [Recovered/Resolved]
